FAERS Safety Report 18992526 (Version 1)
Quarter: 2021Q1

REPORT INFORMATION
  Report Type: Spontaneous
  Country: US (occurrence: US)
  Receive Date: 20210310
  Receipt Date: 20210310
  Transmission Date: 20210420
  Serious: No
  Sender: FDA-Public Use
  Company Number: US-PFIZER INC-2021256745

PATIENT
  Sex: Female

DRUGS (1)
  1. PREMARIN [Suspect]
     Active Substance: ESTROGENS, CONJUGATED
     Indication: PERITONITIS
     Dosage: 0.625 MG, DAILY
     Route: 048
     Dates: start: 1956

REACTIONS (2)
  - Off label use [Unknown]
  - Anovulatory cycle [Unknown]

NARRATIVE: CASE EVENT DATE: 1956
